FAERS Safety Report 7801996-8 (Version None)
Quarter: 2011Q4

REPORT INFORMATION
  Report Type: 
  Country: None (occurrence: None)
  Receive Date: 20111007
  Receipt Date: 20110930
  Transmission Date: 20120403
  Serious: Yes (Hospitalization)
  Sender: FDA-Public Use
  Company Number: PHHO2011US09342

PATIENT
  Sex: Female
  Weight: 31.752 kg

DRUGS (6)
  1. FOLVITE [Concomitant]
     Dosage: 1 MG, QD
     Route: 048
     Dates: end: 20110521
  2. ALBUTEROL [Concomitant]
     Dosage: 4 DF, Q4H
     Dates: start: 20110223
  3. PULMICORT [Concomitant]
     Dosage: 1 DF, UNK
     Dates: start: 20110223
  4. HYDREA [Concomitant]
     Dosage: 1500 MG, QD
     Route: 048
     Dates: start: 20101209, end: 20110521
  5. CREON [Concomitant]
     Dosage: 2 CAPS WITH MEALS AND 1 WITH SNACKS
     Route: 048
     Dates: start: 20100830, end: 20110521
  6. EXJADE [Suspect]
     Indication: IRON OVERLOAD
     Dosage: 750 MG, QD
     Route: 048
     Dates: start: 20100511

REACTIONS (1)
  - HYPOXIA [None]
